FAERS Safety Report 14690361 (Version 4)
Quarter: 2018Q3

REPORT INFORMATION
  Report Type: Spontaneous
  Country: NL (occurrence: NL)
  Receive Date: 20180328
  Receipt Date: 20180709
  Transmission Date: 20181010
  Serious: Yes (Other)
  Sender: FDA-Public Use
  Company Number: PHHY2018NL045905

PATIENT
  Age: 13 Month
  Sex: Male

DRUGS (14)
  1. VORICONAZOLE. [Interacting]
     Active Substance: VORICONAZOLE
     Dosage: LOADING DOSE
     Route: 042
  2. VORICONAZOLE. [Interacting]
     Active Substance: VORICONAZOLE
     Dosage: 27 MG/KG, (LOADING DOSE)
     Route: 042
  3. VORICONAZOLE. [Interacting]
     Active Substance: VORICONAZOLE
     Dosage: 24 MG/KG, (MAINTAINANCE DOSE)
     Route: 042
  4. VORICONAZOLE. [Interacting]
     Active Substance: VORICONAZOLE
     Dosage: 18 MG/KG, UNK
     Route: 042
  5. VORICONAZOLE. [Interacting]
     Active Substance: VORICONAZOLE
     Dosage: LOADING DOSE
     Route: 042
  6. VORICONAZOLE. [Suspect]
     Active Substance: VORICONAZOLE
     Indication: PRODUCT USED FOR UNKNOWN INDICATION
     Dosage: 9 MG/KG, TID (LOADING DOSE)
     Route: 042
  7. VORICONAZOLE. [Interacting]
     Active Substance: VORICONAZOLE
     Dosage: 8 MG/KG, TID (MAINTENANCE DOSE)
     Route: 042
  8. VORICONAZOLE. [Interacting]
     Active Substance: VORICONAZOLE
     Dosage: 6 MG/KG, TID
     Route: 042
  9. VORICONAZOLE. [Interacting]
     Active Substance: VORICONAZOLE
     Dosage: 9 MG/KG, TID (LOADING DOSE)
     Route: 042
  10. VORICONAZOLE. [Interacting]
     Active Substance: VORICONAZOLE
     Dosage: MAINTAINANCE DOSE
     Route: 042
  11. ITRACONAZOLE. [Interacting]
     Active Substance: ITRACONAZOLE
     Route: 065
  12. ITRACONAZOLE. [Interacting]
     Active Substance: ITRACONAZOLE
     Indication: PROPHYLAXIS
  13. ITRACONAZOLE. [Interacting]
     Active Substance: ITRACONAZOLE
     Indication: PROPHYLAXIS
  14. VORICONAZOLE. [Interacting]
     Active Substance: VORICONAZOLE
     Dosage: 8 MG/KG, TID (MAINTENANCE DOSE)
     Route: 042

REACTIONS (5)
  - Hepatotoxicity [Recovering/Resolving]
  - Drug interaction [Unknown]
  - Drug level above therapeutic [Recovered/Resolved]
  - Off label use [Unknown]
  - Cardiovascular insufficiency [Unknown]
